FAERS Safety Report 7527838-6 (Version None)
Quarter: 2011Q2

REPORT INFORMATION
  Report Type: 
  Country: None (occurrence: None)
  Receive Date: 20110527
  Receipt Date: 20110513
  Transmission Date: 20111010
  Serious: Yes (Hospitalization)
  Sender: FDA-Public Use
  Company Number: 1000017750

PATIENT
  Age: 43 Year
  Sex: Female

DRUGS (4)
  1. SEROQUEL (QUETIAPINE FUMARTRATE) (QUETIAPINE FUMARATE) [Concomitant]
  2. LEXAPRO [Suspect]
     Indication: DEPRESSION
     Dosage: 15 MG (15 MG,1 IN 1 D); 10 MG (10 MG,1 IN 1 D); 5 MG (5 MG,1 IN 1 D)
  3. LEXAPRO [Suspect]
     Indication: DEPRESSION
     Dosage: (5 MG)
     Dates: start: 20100906
  4. RISPERIDONE [Concomitant]

REACTIONS (3)
  - RESTLESSNESS [None]
  - WITHDRAWAL SYNDROME [None]
  - AKATHISIA [None]
